FAERS Safety Report 5525916-4 (Version None)
Quarter: 2007Q4

REPORT INFORMATION
  Report Type: 
  Country: None (occurrence: None)
  Receive Date: 20071126
  Receipt Date: 20071114
  Transmission Date: 20080405
  Serious: Yes (Other)
  Sender: FDA-Public Use
  Company Number: US-PFIZER INC-2007096427

PATIENT
  Sex: Female
  Weight: 40 kg

DRUGS (3)
  1. DILANTIN [Suspect]
     Indication: PARTIAL SEIZURES
     Route: 048
  2. DILANTIN [Suspect]
  3. KEPPRA [Concomitant]

REACTIONS (4)
  - ANTICONVULSANT DRUG LEVEL DECREASED [None]
  - CONVULSION [None]
  - STOMACH DISCOMFORT [None]
  - VOMITING [None]
